FAERS Safety Report 6609348-3 (Version None)
Quarter: 2010Q1

REPORT INFORMATION
  Report Type: 
  Country: None (occurrence: None)
  Receive Date: 20100224
  Receipt Date: 20100219
  Transmission Date: 20100710
  Serious: Yes (Other)
  Sender: FDA-Public Use
  Company Number: 1000011965

PATIENT
  Age: 49 Year
  Sex: Female

DRUGS (10)
  1. SAVELLA [Suspect]
     Indication: FIBROMYALGIA
     Dosage: 12.5 MG (12.5 MG, 1 IN 1 D),ORAL; 25 MG (12.5 MG,2 IN 1 D),ORAL;  50 MG (25 MG,2 IN 1 D),ORAL
     Route: 048
     Dates: start: 20090603, end: 20090603
  2. SAVELLA [Suspect]
     Indication: FIBROMYALGIA
     Dosage: 12.5 MG (12.5 MG, 1 IN 1 D),ORAL; 25 MG (12.5 MG,2 IN 1 D),ORAL;  50 MG (25 MG,2 IN 1 D),ORAL
     Route: 048
     Dates: start: 20090604, end: 20090605
  3. SAVELLA [Suspect]
     Indication: FIBROMYALGIA
     Dosage: 12.5 MG (12.5 MG, 1 IN 1 D),ORAL; 25 MG (12.5 MG,2 IN 1 D),ORAL;  50 MG (25 MG,2 IN 1 D),ORAL
     Route: 048
     Dates: start: 20090606, end: 20090609
  4. SAVELLA [Suspect]
     Indication: FIBROMYALGIA
     Dosage: 100 MG (50 MG),ORAL
     Route: 048
     Dates: start: 20090610, end: 20090628
  5. SAVELLA [Suspect]
     Indication: FIBROMYALGIA
     Dosage: 25 MG EVERY MORNING, 50 MG QHS (1 IN 1 D),ORAL
     Route: 048
     Dates: start: 20090629, end: 20090714
  6. CORTISONE ACETATE INJ [Concomitant]
  7. SOMA (350 MILLIGRAM) [Concomitant]
  8. TRAMADOL HCL [Concomitant]
  9. XANAX (0.5 MILLIGRAM) [Concomitant]
  10. NORCO [Concomitant]

REACTIONS (10)
  - ADRENAL INSUFFICIENCY [None]
  - BLOOD CATECHOLAMINES INCREASED [None]
  - CHILLS [None]
  - CONTUSION [None]
  - DYSPNOEA [None]
  - NOREPINEPHRINE INCREASED [None]
  - TACHYCARDIA [None]
  - THIRST [None]
  - TREMOR [None]
  - VISION BLURRED [None]
